FAERS Safety Report 17662141 (Version 2)
Quarter: 2020Q3

REPORT INFORMATION
  Report Type: Report from Study
  Country: FR (occurrence: FR)
  Receive Date: 20200413
  Receipt Date: 20200717
  Transmission Date: 20201102
  Serious: Yes (Other)
  Sender: FDA-Public Use
  Company Number: FR-ADVANZ PHARMA-202003002380

PATIENT

DRUGS (3)
  1. ENOXAPARIN [Concomitant]
     Active Substance: ENOXAPARIN
     Indication: PROPHYLAXIS
     Dosage: UNK
     Dates: start: 20200327
  2. PARACETAMOL [Concomitant]
     Active Substance: ACETAMINOPHEN
     Indication: PYREXIA
     Dosage: UNK
     Dates: start: 20200326, end: 20200329
  3. HYDROXYCHLOROQUINE [Suspect]
     Active Substance: HYDROXYCHLOROQUINE
     Indication: COVID-19
     Dosage: 400 MG, QD (FIIM?COATED TABLET)
     Route: 048
     Dates: start: 20200324, end: 202003

REACTIONS (2)
  - Hepatocellular injury [Recovering/Resolving]
  - Off label use [Unknown]

NARRATIVE: CASE EVENT DATE: 20200324
